FAERS Safety Report 5557925-3 (Version None)
Quarter: 2007Q4

REPORT INFORMATION
  Report Type: 
  Country: None (occurrence: None)
  Receive Date: 20071214
  Receipt Date: 20071205
  Transmission Date: 20080405
  Serious: Yes (Other)
  Sender: FDA-Public Use
  Company Number: CN-ASTRAZENECA-2007AP07763

PATIENT
  Age: 30 Year
  Sex: Female

DRUGS (4)
  1. ARIMIDEX [Suspect]
     Indication: BREAST CANCER
     Route: 048
     Dates: start: 20071001
  2. DIPHERELINE [Suspect]
     Indication: BREAST CANCER
     Route: 030
     Dates: start: 20071001
  3. EPIRUBICIN [Suspect]
     Indication: BREAST CANCER
     Dosage: 6 CYCLES ADMINISTERED
  4. PACLITAXEL [Concomitant]
     Indication: BREAST CANCER
     Dosage: 6 CYCLES ADMINISTERED

REACTIONS (2)
  - CHEST PAIN [None]
  - EJECTION FRACTION DECREASED [None]
